FAERS Safety Report 8767961 (Version 2)
Quarter: 2012Q4

REPORT INFORMATION
  Report Type: 
  Country: US (occurrence: US)
  Receive Date: 20120904
  Receipt Date: 20121204
  Transmission Date: 20130627
  Serious: No
  Sender: FDA-Public Use
  Company Number: US-AMGEN-USASP2012052072

PATIENT
  Age: 70 Year
  Sex: Male
  Weight: 93.88 kg

DRUGS (4)
  1. ENBREL [Suspect]
     Indication: RHEUMATOID ARTHRITIS
     Dosage: 50 mg, every other week
     Route: 058
     Dates: start: 20110801
  2. METHOTREXATE SODIUM [Concomitant]
     Dosage: 2.5 mg, 6 tabs once a week
     Route: 048
     Dates: start: 201107
  3. PREDNISONE [Concomitant]
     Dosage: 5 mg, 2 qd
     Route: 048
     Dates: start: 201103
  4. VOLTAREN                           /00372301/ [Concomitant]
     Dosage: 75 mg,
     Route: 048
     Dates: start: 20100813

REACTIONS (16)
  - Blood triglycerides increased [Not Recovered/Not Resolved]
  - Low density lipoprotein [Not Recovered/Not Resolved]
  - Muscle spasms [Not Recovered/Not Resolved]
  - Eye pruritus [Not Recovered/Not Resolved]
  - Dry eye [Not Recovered/Not Resolved]
  - Erythema of eyelid [Not Recovered/Not Resolved]
  - Oedema peripheral [Not Recovered/Not Resolved]
  - Joint swelling [Not Recovered/Not Resolved]
  - Swelling [Not Recovered/Not Resolved]
  - Asthma [Unknown]
  - Emphysema [Unknown]
  - Fibromyalgia [Not Recovered/Not Resolved]
  - Arthralgia [Unknown]
  - Drooling [Not Recovered/Not Resolved]
  - Weight increased [Not Recovered/Not Resolved]
  - Lymphadenopathy [Unknown]
